FAERS Safety Report 7213603-6 (Version None)
Quarter: 2010Q4

REPORT INFORMATION
  Report Type: 
  Country: None (occurrence: None)
  Receive Date: 20101229
  Receipt Date: 20101214
  Transmission Date: 20110411
  Serious: Yes (Death, Other)
  Sender: FDA-Public Use
  Company Number: 012282

PATIENT
  Age: 1 Year
  Sex: Male

DRUGS (2)
  1. BUSULFEX [Suspect]
     Indication: BONE MARROW TRANSPLANT
     Dosage: 1 MG/KG, Q12HR, INTRAVENOUS
     Route: 042
  2. FLUDARABINE PHOSPHATE [Concomitant]

REACTIONS (7)
  - CENTRAL NERVOUS SYSTEM NECROSIS [None]
  - CEREBRAL HAEMORRHAGE [None]
  - HEPATIC FAILURE [None]
  - HEPATIC FIBROSIS [None]
  - INTRACARDIAC THROMBUS [None]
  - LARGE INTESTINAL ULCER [None]
  - SEPSIS [None]
